FAERS Safety Report 6837830-2 (Version None)
Quarter: 2010Q3

REPORT INFORMATION
  Report Type: 
  Country: None (occurrence: None)
  Receive Date: 20100713
  Receipt Date: 20070523
  Transmission Date: 20110219
  Serious: No
  Sender: FDA-Public Use
  Company Number: US-PFIZER INC-2007042778

PATIENT
  Sex: Female
  Weight: 66.3 kg

DRUGS (7)
  1. CHANTIX [Suspect]
     Indication: SMOKING CESSATION THERAPY
     Dates: start: 20070401, end: 20070522
  2. SYNTHROID [Concomitant]
  3. PRILOSEC [Concomitant]
  4. ACETYLSALICYLIC ACID [Concomitant]
  5. MULTI-VITAMINS [Concomitant]
  6. LORTAB [Concomitant]
  7. XANAX [Concomitant]

REACTIONS (7)
  - ABNORMAL DREAMS [None]
  - DEPRESSION [None]
  - FATIGUE [None]
  - FLATULENCE [None]
  - IRRITABILITY [None]
  - STRESS [None]
  - VAGINAL INFECTION [None]
